FAERS Safety Report 8955437 (Version 1)
Quarter: 2012Q4

REPORT INFORMATION
  Report Type: 
  Country: US (occurrence: US)
  Receive Date: 20121210
  Receipt Date: 20121210
  Transmission Date: 20130627
  Serious: No
  Sender: FDA-Public Use
  Company Number: US-PFIZER INC-2012306543

PATIENT
  Sex: Male

DRUGS (2)
  1. XALATAN [Suspect]
     Indication: GLAUCOMA
     Dosage: UNK
  2. TRAVOPROST [Suspect]
     Indication: GLAUCOMA
     Dosage: UNK

REACTIONS (3)
  - Eye irritation [Unknown]
  - Dry eye [Unknown]
  - Product quality issue [Unknown]
